FAERS Safety Report 7777410-8 (Version None)
Quarter: 2011Q3

REPORT INFORMATION
  Report Type: 
  Country: None (occurrence: None)
  Receive Date: 20110926
  Receipt Date: 20110920
  Transmission Date: 20111222
  Serious: Yes (Death)
  Sender: FDA-Public Use
  Company Number: JP-PFIZER INC-2011225983

PATIENT
  Age: 75 Year
  Sex: Male
  Weight: 59.2 kg

DRUGS (2)
  1. ETHYL ICOSAPENTATE [Concomitant]
     Dosage: UNK
     Dates: end: 20110726
  2. ATORVASTATIN CALCIUM [Suspect]
     Indication: HYPERCHOLESTEROLAEMIA
     Dosage: 10 MG, UID/QD
     Route: 048
     Dates: start: 20110303, end: 20110726

REACTIONS (1)
  - BRAIN STEM INFARCTION [None]
